FAERS Safety Report 4450884-6 (Version None)
Quarter: 2004Q3

REPORT INFORMATION
  Report Type: 
  Country: None (occurrence: None)
  Receive Date: 20040916
  Receipt Date: 20020102
  Transmission Date: 20050211
  Serious: Yes (Death, Hospitalization, Other)
  Sender: FDA-Public Use
  Company Number: US-BRISTOL-MYERS SQUIBB COMPANY-11706686

PATIENT
  Age: 30 Year
  Sex: Female

DRUGS (8)
  1. STADOL [Suspect]
     Indication: HEADACHE
     Route: 045
     Dates: start: 19960609, end: 19981101
  2. STADOL [Suspect]
     Indication: HEADACHE
  3. PROMETHAZINE [Concomitant]
  4. HYDROCODONE + ACETAMINOPHEN [Concomitant]
  5. CARISOPRODOL [Concomitant]
  6. DIAZEPAM [Concomitant]
  7. RISPERDAL [Concomitant]
  8. TRAZODONE HCL [Concomitant]

REACTIONS (4)
  - DEPENDENCE [None]
  - DRUG WITHDRAWAL SYNDROME [None]
  - HEADACHE [None]
  - MEDICATION ERROR [None]
